FAERS Safety Report 12136632 (Version 1)
Quarter: 2016Q1

REPORT INFORMATION
  Report Type: Spontaneous
  Country: US (occurrence: None)
  Receive Date: 20160301
  Receipt Date: 20160301
  Transmission Date: 20160526
  Serious: No
  Sender: FDA-Public Use
  Company Number: None

PATIENT
  Age: 43 Year
  Sex: Female
  Weight: 65.77 kg

DRUGS (11)
  1. TRAMADOL. [Concomitant]
     Active Substance: TRAMADOL
  2. ARAVA [Suspect]
     Active Substance: LEFLUNOMIDE
     Indication: SPONDYLITIS
     Dosage: 1 PILL ONCE DAILY TAKEN BY MOUTH
     Route: 048
     Dates: start: 20140428, end: 20140815
  3. SUDAFED [Concomitant]
     Active Substance: PSEUDOEPHEDRINE HYDROCHLORIDE
  4. NORCO [Concomitant]
     Active Substance: ACETAMINOPHEN\HYDROCODONE BITARTRATE
  5. NORFLEX [Concomitant]
     Active Substance: ORPHENADRINE CITRATE
  6. TYLENOL [Concomitant]
     Active Substance: ACETAMINOPHEN
  7. MELOXICAM. [Concomitant]
     Active Substance: MELOXICAM
  8. MULTIVITAMIN [Concomitant]
     Active Substance: VITAMINS
  9. BIOTIN [Concomitant]
     Active Substance: BIOTIN
  10. BENADRYL [Concomitant]
     Active Substance: DIPHENHYDRAMINE HYDROCHLORIDE
  11. IBUPROFEN. [Concomitant]
     Active Substance: IBUPROFEN

REACTIONS (8)
  - Acne cystic [None]
  - Cyst [None]
  - Rash [None]
  - Headache [None]
  - Pruritus [None]
  - Hypertension [None]
  - Fungal infection [None]
  - Alopecia [None]

NARRATIVE: CASE EVENT DATE: 20140428
